FAERS Safety Report 9216313 (Version 5)
Quarter: 2014Q3

REPORT INFORMATION
  Report Type: Spontaneous
  Country: JP (occurrence: JP)
  Receive Date: 20130408
  Receipt Date: 20140922
  Transmission Date: 20150326
  Serious: Yes (Hospitalization)
  Sender: FDA-Public Use
  Company Number: PHHY2013JP033114

PATIENT
  Sex: Male

DRUGS (2)
  1. TASIGNA [Suspect]
     Active Substance: NILOTINIB
     Indication: CHRONIC MYELOID LEUKAEMIA
     Dosage: 400 TO 600 MG, DAILY
     Route: 048
     Dates: start: 20110422, end: 20130125
  2. TASIGNA [Suspect]
     Active Substance: NILOTINIB
     Dosage: 400 MG, DAILY
     Route: 048
     Dates: start: 20130312, end: 20130330

REACTIONS (4)
  - Second primary malignancy [Recovered/Resolved]
  - Pancreatic carcinoma [Recovered/Resolved]
  - Apathy [Recovered/Resolved]
  - Nausea [Recovering/Resolving]
